FAERS Safety Report 8202949-0 (Version None)
Quarter: 2012Q1

REPORT INFORMATION
  Report Type: 
  Country: None (occurrence: None)
  Receive Date: 20120312
  Receipt Date: 20120305
  Transmission Date: 20120608
  Serious: Yes (Disabling)
  Sender: FDA-Public Use
  Company Number: US-CELGENEUS-163-20785-11111996

PATIENT
  Sex: Male

DRUGS (5)
  1. THALOMID [Suspect]
     Indication: MULTIPLE MYELOMA
     Dosage: 50 MILLIGRAM
     Route: 048
     Dates: start: 20110113, end: 20111111
  2. DURAGESIC-100 [Concomitant]
     Indication: PAIN
     Dosage: 25 MICROGRAM
     Route: 065
     Dates: start: 20111031
  3. VELCADE [Concomitant]
     Route: 065
     Dates: start: 20111114
  4. NORCO [Concomitant]
     Indication: PAIN
     Dosage: 325MG/5MG
     Route: 065
     Dates: start: 20110929
  5. STEROID THERAPY [Concomitant]
     Route: 065
     Dates: start: 20111114

REACTIONS (8)
  - MULTIPLE MYELOMA [None]
  - TREATMENT NONCOMPLIANCE [None]
  - EYE IRRITATION [None]
  - GOUT [None]
  - CONSTIPATION [None]
  - BONE PAIN [None]
  - TINNITUS [None]
  - MUSCLE SPASMS [None]
